FAERS Safety Report 9738633 (Version 1)
Quarter: 2013Q4

REPORT INFORMATION
  Report Type: Spontaneous
  Country: DE (occurrence: DE)
  Receive Date: 20131209
  Receipt Date: 20131209
  Transmission Date: 20140711
  Serious: Yes (Other)
  Sender: FDA-Public Use
  Company Number: DE-BIOGENIDEC-2013BI047294

PATIENT
  Age: 31 Year
  Sex: Female
  Weight: 107 kg

DRUGS (1)
  1. AVONEX [Suspect]
     Indication: MULTIPLE SCLEROSIS
     Route: 030
     Dates: start: 20050701, end: 201302

REACTIONS (1)
  - Cephalo-pelvic disproportion [Recovered/Resolved]
